FAERS Safety Report 10210275 (Version 2)
Quarter: 2014Q2

REPORT INFORMATION
  Report Type: Spontaneous
  Country: US (occurrence: US)
  Receive Date: 20140602
  Receipt Date: 20140617
  Transmission Date: 20141212
  Serious: Yes (Disabling)
  Sender: FDA-Public Use
  Company Number: US-SA-2014SA066439

PATIENT
  Age: 80 Year
  Sex: Female

DRUGS (9)
  1. LANTUS SOLOSTAR [Suspect]
     Indication: TYPE 2 DIABETES MELLITUS
     Dosage: DOSE:40 UNIT(S)
     Route: 065
  2. SOLOSTAR [Concomitant]
  3. HUMALOG [Concomitant]
  4. DEVICE NOS [Concomitant]
  5. CYMBALTA [Concomitant]
  6. GABAPENTIN [Concomitant]
     Dosage: 1.5
  7. HYZAAR [Concomitant]
  8. PRILOSEC [Concomitant]
     Dosage: 1
  9. FOSAMAX [Concomitant]

REACTIONS (2)
  - Disability [Not Recovered/Not Resolved]
  - Visual impairment [Not Recovered/Not Resolved]
